FAERS Safety Report 9981185 (Version 1)
Quarter: 2014Q1

REPORT INFORMATION
  Report Type: Spontaneous
  Country: US (occurrence: None)
  Receive Date: 20140306
  Receipt Date: 20140306
  Transmission Date: 20141002
  Serious: No
  Sender: FDA-Public Use
  Company Number: None

PATIENT
  Age: 56 Year
  Sex: Female
  Weight: 67.13 kg

DRUGS (5)
  1. MIRVASO GEL [Suspect]
     Indication: ROSACEA
     Route: 061
     Dates: start: 20140215, end: 20140222
  2. CITRACEL [Concomitant]
  3. MULTIVITAMIN [Concomitant]
  4. GLUCOSAMINE [Concomitant]
  5. FLAXSEED CAP [Concomitant]

REACTIONS (3)
  - Acne [None]
  - Application site erythema [None]
  - Nasal discomfort [None]
